FAERS Safety Report 11862861 (Version 1)
Quarter: 2015Q4

REPORT INFORMATION
  Report Type: Spontaneous
  Country: US (occurrence: US)
  Receive Date: 20151223
  Receipt Date: 20151223
  Transmission Date: 20160305
  Serious: Yes (Other)
  Sender: FDA-Public Use
  Company Number: US-BEH-2015057010

PATIENT
  Sex: Female
  Weight: 69 kg

DRUGS (19)
  1. LEVAQUIN [Concomitant]
     Active Substance: LEVOFLOXACIN
  2. OXYCODONE [Concomitant]
     Active Substance: OXYCODONE
  3. ESTRADIOL. [Concomitant]
     Active Substance: ESTRADIOL
  4. EPIPEN [Concomitant]
     Active Substance: EPINEPHRINE
  5. PROTONIX [Concomitant]
     Active Substance: PANTOPRAZOLE SODIUM
  6. NEURONTIN [Concomitant]
     Active Substance: GABAPENTIN
  7. HIZENTRA [Suspect]
     Active Substance: HUMAN IMMUNOGLOBULIN G
     Indication: IMMUNODEFICIENCY COMMON VARIABLE
     Dosage: 10 GM 50 ML VIAL
     Route: 058
     Dates: start: 20140909
  8. LMX [Concomitant]
     Active Substance: LIDOCAINE
  9. ACETAMINOPHEN. [Concomitant]
     Active Substance: ACETAMINOPHEN
  10. SPIRONOLACTONE. [Concomitant]
     Active Substance: SPIRONOLACTONE
  11. MORPHINE [Concomitant]
     Active Substance: MORPHINE
  12. PREDNISONE. [Concomitant]
     Active Substance: PREDNISONE
  13. XYZAL [Concomitant]
     Active Substance: LEVOCETIRIZINE DIHYDROCHLORIDE
  14. VALIUM [Concomitant]
     Active Substance: DIAZEPAM
  15. LISINOPRIL. [Concomitant]
     Active Substance: LISINOPRIL
  16. TRAZODONE [Concomitant]
     Active Substance: TRAZODONE HYDROCHLORIDE
  17. EFFEXOR [Concomitant]
     Active Substance: VENLAFAXINE HYDROCHLORIDE
  18. PROAIR HFA [Concomitant]
     Active Substance: ALBUTEROL SULFATE
  19. DIPHENHYDRAMINE. [Concomitant]
     Active Substance: DIPHENHYDRAMINE

REACTIONS (1)
  - Pneumonia [Unknown]
